FAERS Safety Report 6199359-7 (Version None)
Quarter: 2009Q2

REPORT INFORMATION
  Report Type: 
  Country: None (occurrence: None)
  Receive Date: 20090519
  Receipt Date: 20090506
  Transmission Date: 20091009
  Serious: Yes (Hospitalization)
  Sender: FDA-Public Use
  Company Number: 239091J08USA

PATIENT
  Age: 31 Year
  Sex: Female
  Weight: 122 kg

DRUGS (8)
  1. REBIF [Suspect]
     Indication: MULTIPLE SCLEROSIS
     Dosage: 44 MCG, 3 IN 1 WEEKS, SUBCUTANEOUS
     Route: 058
     Dates: start: 20070101
  2. ADVIL [Concomitant]
  3. PROVIGIL [Concomitant]
  4. LISINOPRIL/HYDROCHLORIDE (PRINZIDE) [Concomitant]
  5. BACLOFEN [Concomitant]
  6. POTASSIUM (POTASSIUM) [Concomitant]
  7. MECLIZINE [Concomitant]
  8. DOCUSTATE (DOCUSATE) [Concomitant]

REACTIONS (7)
  - ANAEMIA [None]
  - FATIGUE [None]
  - HEADACHE [None]
  - HYPOVENTILATION [None]
  - THROMBOSIS [None]
  - UTERINE DISORDER [None]
  - VAGINAL HAEMORRHAGE [None]
